FAERS Safety Report 19369883 (Version 1)
Quarter: 2021Q2

REPORT INFORMATION
  Report Type: Spontaneous
  Country: DE (occurrence: DE)
  Receive Date: 20210604
  Receipt Date: 20210604
  Transmission Date: 20210717
  Serious: Yes (Hospitalization, Other)
  Sender: FDA-Public Use
  Company Number: DE-AUROBINDO-AUR-APL-2021-022733

PATIENT
  Age: 32 Year
  Sex: Female
  Weight: 74 kg

DRUGS (4)
  1. L?THYROXIN [Concomitant]
     Active Substance: LEVOTHYROXINE SODIUM
     Indication: HYPOTHYROIDISM
     Dosage: 25 MICROGRAM
     Route: 065
  2. RIBAVIRIN FILM COATED TABLETS [Suspect]
     Active Substance: RIBAVIRIN
     Indication: CHRONIC HEPATITIS C
     Dosage: 800 MILLIGRAM
     Route: 048
     Dates: start: 20120229
  3. PEGINTERFERON ALFA?2A. [Suspect]
     Active Substance: PEGINTERFERON ALFA-2A
     Indication: CHRONIC HEPATITIS C
     Dosage: 135 MICROGRAM, EVERY WEEK
     Route: 058
     Dates: start: 20120229
  4. FLUOXETIN [Concomitant]
     Active Substance: FLUOXETINE HYDROCHLORIDE
     Indication: DEPRESSION
     Dosage: 50 MILLIGRAM
     Route: 048
     Dates: start: 201201

REACTIONS (3)
  - Initial insomnia [Unknown]
  - Drug dependence [Not Recovered/Not Resolved]
  - Depression [Not Recovered/Not Resolved]

NARRATIVE: CASE EVENT DATE: 20120403
